FAERS Safety Report 13629744 (Version 1)
Quarter: 2017Q2

REPORT INFORMATION
  Report Type: Spontaneous
  Country: FR (occurrence: FR)
  Receive Date: 20170608
  Receipt Date: 20170608
  Transmission Date: 20170830
  Serious: Yes (Other)
  Sender: FDA-Public Use
  Company Number: FR-BAYER-2017-104156

PATIENT
  Sex: Female

DRUGS (1)
  1. MIRENA [Suspect]
     Active Substance: LEVONORGESTREL
     Indication: CONTRACEPTION
     Dosage: UNK
     Route: 015
     Dates: start: 20040606, end: 20150731

REACTIONS (8)
  - Hyperhidrosis [Recovered/Resolved]
  - Loss of libido [Unknown]
  - Weight increased [Not Recovered/Not Resolved]
  - Migraine [Recovered/Resolved]
  - Depression [Recovered/Resolved]
  - Hypertrichosis [Not Recovered/Not Resolved]
  - Genital infection fungal [Recovered/Resolved]
  - Anxiety [Recovered/Resolved]

NARRATIVE: CASE EVENT DATE: 2015
